FAERS Safety Report 12073613 (Version 3)
Quarter: 2016Q3

REPORT INFORMATION
  Report Type: Report from Study
  Country: GB (occurrence: GB)
  Receive Date: 20160212
  Receipt Date: 20160728
  Transmission Date: 20161109
  Serious: Yes (Other)
  Sender: FDA-Public Use
  Company Number: GB-JNJFOC-20160203833

PATIENT
  Sex: Male

DRUGS (1)
  1. STELARA [Suspect]
     Active Substance: USTEKINUMAB
     Indication: PSORIASIS
     Route: 058
     Dates: start: 20141001

REACTIONS (4)
  - Arthritis [Not Recovered/Not Resolved]
  - Diabetic neuropathy [Unknown]
  - Arthralgia [Unknown]
  - Memory impairment [Unknown]
